FAERS Safety Report 4625983-6 (Version None)
Quarter: 2005Q2

REPORT INFORMATION
  Report Type: 
  Country: None (occurrence: None)
  Receive Date: 20050404
  Receipt Date: 20050209
  Transmission Date: 20051028
  Serious: Yes (Life-Threatening, Hospitalization)
  Sender: FDA-Public Use
  Company Number: PHNU2005SI00925

PATIENT
  Age: 33 Year
  Sex: Male

DRUGS (3)
  1. LEPONEX / CLOZARIL (CLOZAPINE) [Suspect]
     Indication: SCHIZOPHRENIA
     Dosage: 350 MG/DAY
     Route: 048
  2. LAMICTAL [Concomitant]
     Dosage: 100 MG, BID
     Route: 048
  3. FLUANXOL [Concomitant]
     Dosage: 20 MG/DAY
     Route: 048

REACTIONS (6)
  - ABSCESS [None]
  - AGRANULOCYTOSIS [None]
  - DYSPNOEA [None]
  - LEUKOPENIA [None]
  - PYREXIA [None]
  - SEPSIS [None]
